FAERS Safety Report 7363625-X (Version None)
Quarter: 2011Q1

REPORT INFORMATION
  Report Type: 
  Country: None (occurrence: None)
  Receive Date: 20110321
  Receipt Date: 20110317
  Transmission Date: 20110831
  Serious: Yes (Other)
  Sender: FDA-Public Use
  Company Number: IQ-PFIZER INC-2011059029

PATIENT
  Age: 46 Year
  Sex: Female

DRUGS (2)
  1. CEFOBID [Suspect]
     Indication: SEPSIS
  2. CEFOBID [Suspect]
     Indication: SINUSITIS
     Dosage: 1 G, 1X/DAY
     Route: 042
     Dates: start: 20110201

REACTIONS (5)
  - NAUSEA [None]
  - HEADACHE [None]
  - SYNCOPE [None]
  - VOMITING [None]
  - ABDOMINAL PAIN UPPER [None]
